FAERS Safety Report 5939850-9 (Version None)
Quarter: 2008Q4

REPORT INFORMATION
  Report Type: 
  Country: None (occurrence: None)
  Receive Date: 20081030
  Receipt Date: 20081030
  Transmission Date: 20090506
  Serious: Yes (Life-Threatening, Hospitalization, Disabling, Congenital Anomaly)
  Sender: FDA-Public Use
  Company Number: None

PATIENT
  Sex: Female
  Weight: 3.5 kg

DRUGS (4)
  1. ROBAXIN [Suspect]
     Indication: PAIN
     Dosage: STANDARD DOSE PRESUMED DAILY
     Dates: start: 20080401, end: 20081017
  2. ROBAXIN [Suspect]
     Indication: ROAD TRAFFIC ACCIDENT
     Dosage: STANDARD DOSE PRESUMED DAILY
     Dates: start: 20080401, end: 20081017
  3. PERCOCET [Suspect]
     Dosage: 8-10 TABS DAILY
     Dates: start: 20080401, end: 20081017
  4. VICODIN [Suspect]
     Dosage: 8-10 TABS  DAILY
     Dates: start: 20080401, end: 20081017

REACTIONS (4)
  - CHARGE SYNDROME [None]
  - MATERNAL DRUGS AFFECTING FOETUS [None]
  - NEONATAL RESPIRATORY DISTRESS SYNDROME [None]
  - PERSISTENT FOETAL CIRCULATION [None]
